FAERS Safety Report 14705990 (Version 1)
Quarter: 2018Q2

REPORT INFORMATION
  Report Type: Spontaneous
  Country: ES (occurrence: ES)
  Receive Date: 20180402
  Receipt Date: 20180402
  Transmission Date: 20180711
  Serious: Yes (Other)
  Sender: FDA-Public Use
  Company Number: PHHY2018ES057535

PATIENT
  Age: 50 Year
  Sex: Male

DRUGS (1)
  1. TEGRETOL [Suspect]
     Active Substance: CARBAMAZEPINE
     Indication: NEURALGIA
     Dosage: UNK
     Route: 065

REACTIONS (5)
  - Chills [Recovered/Resolved]
  - Eosinophilia [Recovered/Resolved]
  - Pruritus [Recovering/Resolving]
  - Erythema [Recovering/Resolving]
  - Oedema peripheral [Recovering/Resolving]

NARRATIVE: CASE EVENT DATE: 20171228
